FAERS Safety Report 11829655 (Version 1)
Quarter: 2015Q4

REPORT INFORMATION
  Report Type: Spontaneous
  Country: FR (occurrence: FR)
  Receive Date: 20151212
  Receipt Date: 20151212
  Transmission Date: 20160305
  Serious: Yes (Hospitalization, Other)
  Sender: FDA-Public Use
  Company Number: FR-ASTRAZENECA-2015SF20561

PATIENT
  Age: 67 Year
  Sex: Female

DRUGS (5)
  1. ELISOR [Suspect]
     Active Substance: PRAVASTATIN SODIUM
     Route: 048
     Dates: end: 20151103
  2. TACROLIMUS. [Suspect]
     Active Substance: TACROLIMUS
     Route: 048
     Dates: start: 201111
  3. INEXIUM [Suspect]
     Active Substance: ESOMEPRAZOLE
     Route: 048
  4. RAPAMUNE [Suspect]
     Active Substance: SIROLIMUS
     Route: 048
     Dates: start: 201111, end: 20150518
  5. MYFORTIC [Suspect]
     Active Substance: MYCOPHENOLATE SODIUM
     Route: 048
     Dates: start: 201203, end: 201511

REACTIONS (7)
  - Septic shock [Unknown]
  - Pulmonary fibrosis [Unknown]
  - Diarrhoea [Unknown]
  - Lung disorder [Not Recovered/Not Resolved]
  - Pulmonary alveolar haemorrhage [Unknown]
  - Vomiting [Unknown]
  - Pneumonia escherichia [Unknown]

NARRATIVE: CASE EVENT DATE: 2013
